FAERS Safety Report 5803903-6 (Version None)
Quarter: 2008Q3

REPORT INFORMATION
  Report Type: 
  Country: None (occurrence: None)
  Receive Date: 20080707
  Receipt Date: 20080620
  Transmission Date: 20090109
  Serious: Yes (Hospitalization)
  Sender: FDA-Public Use
  Company Number: S08-FRA-02256-01

PATIENT
  Age: 28 Year
  Sex: Male

DRUGS (6)
  1. SEROPLEX (ESCITALOPRAM) [Suspect]
     Dosage: 10 MG QD PO
     Route: 048
     Dates: start: 20080409, end: 20080416
  2. LITHIUM CARBONATE [Suspect]
     Dosage: 1000 MG QD PO
     Route: 048
  3. LAMICTAL [Concomitant]
  4. CLONAZEPAM [Concomitant]
  5. NOZINAN (LEVOMEPROMAZINE) [Concomitant]
  6. IMOVANE (ZOPICLONE) [Concomitant]

REACTIONS (3)
  - BRADYCARDIA [None]
  - DRUG INTERACTION [None]
  - MALAISE [None]
